FAERS Safety Report 10022101 (Version 2)
Quarter: 2014Q2

REPORT INFORMATION
  Report Type: Spontaneous
  Country: US (occurrence: US)
  Receive Date: 20140319
  Receipt Date: 20140523
  Transmission Date: 20141212
  Serious: Yes (Hospitalization)
  Sender: FDA-Public Use
  Company Number: US-GLAXOSMITHKLINE-A1064897A

PATIENT
  Age: 62 Year
  Sex: Female

DRUGS (2)
  1. ADVAIR [Suspect]
     Indication: CHRONIC OBSTRUCTIVE PULMONARY DISEASE
     Dosage: 1PUFF TWICE PER DAY
     Route: 055
     Dates: start: 2009
  2. UNSPECIFIED MEDICATIONS [Concomitant]

REACTIONS (4)
  - Coma [Recovering/Resolving]
  - Thrombosis [Recovering/Resolving]
  - Therapy cessation [Unknown]
  - Dyspnoea [Unknown]
